FAERS Safety Report 10149561 (Version 1)
Quarter: 2014Q2

REPORT INFORMATION
  Report Type: Spontaneous
  Country: US (occurrence: US)
  Receive Date: 20140502
  Receipt Date: 20140502
  Transmission Date: 20141212
  Serious: Yes (Disabling)
  Sender: FDA-Public Use
  Company Number: US-PFIZER INC-2014118713

PATIENT
  Age: 65 Year
  Sex: Female
  Weight: 108.39 kg

DRUGS (1)
  1. NEURONTIN [Suspect]
     Indication: DIABETIC NEUROPATHY
     Dosage: 4800 MG, DAILY

REACTIONS (1)
  - Diabetic neuropathy [Unknown]
